FAERS Safety Report 9205270 (Version 2)
Quarter: 2013Q2

REPORT INFORMATION
  Report Type: Spontaneous
  Country: US (occurrence: US)
  Receive Date: 20130402
  Receipt Date: 20130405
  Transmission Date: 20140414
  Serious: Yes (Other)
  Sender: FDA-Public Use
  Company Number: CHPA2013US005472

PATIENT
  Age: 38 Year
  Sex: Male

DRUGS (1)
  1. EXCEDRIN UNKNOWN [Suspect]
     Indication: MIGRAINE
     Dosage: UNK, UNK

REACTIONS (4)
  - Cerebrovascular accident [Unknown]
  - Headache [Unknown]
  - Migraine [Unknown]
  - Disease recurrence [Unknown]
